FAERS Safety Report 17326538 (Version 1)
Quarter: 2020Q1

REPORT INFORMATION
  Report Type: Spontaneous
  Country: US (occurrence: US)
  Receive Date: 20200127
  Receipt Date: 20200127
  Transmission Date: 20200409
  Serious: Yes (Other)
  Sender: FDA-Public Use
  Company Number: US-PIRAMAL ENTERPRISES LIMITED-2019-PEL-000064

PATIENT

DRUGS (1)
  1. GABLOFEN [Suspect]
     Active Substance: BACLOFEN
     Indication: MUSCLE SPASTICITY
     Dosage: 3.02 MICROGRAM, QD
     Route: 037

REACTIONS (3)
  - Implant site extravasation [Unknown]
  - Incision site swelling [Unknown]
  - Device related infection [Unknown]

NARRATIVE: CASE EVENT DATE: 20190201
